FAERS Safety Report 7790064-X (Version None)
Quarter: 2011Q3

REPORT INFORMATION
  Report Type: 
  Country: None (occurrence: None)
  Receive Date: 20110930
  Receipt Date: 20100804
  Transmission Date: 20111222
  Serious: No
  Sender: FDA-Public Use
  Company Number: US-ASTRAZENECA-2009UW03051

PATIENT
  Sex: Female
  Weight: 88.5 kg

DRUGS (1)
  1. ARIMIDEX [Suspect]
     Route: 048
     Dates: start: 20080701

REACTIONS (3)
  - FUNGAL INFECTION [None]
  - ARTHRALGIA [None]
  - ILL-DEFINED DISORDER [None]
